FAERS Safety Report 7502622-8 (Version None)
Quarter: 2011Q2

REPORT INFORMATION
  Report Type: 
  Country: None (occurrence: None)
  Receive Date: 20110525
  Receipt Date: 20110511
  Transmission Date: 20111010
  Serious: Yes (Hospitalization)
  Sender: FDA-Public Use
  Company Number: PHHY2011US40403

PATIENT
  Age: 52 Year
  Sex: Female
  Weight: 90 kg

DRUGS (6)
  1. PREGABALIN [Concomitant]
     Dosage: 25 MG, DAILY
     Route: 048
     Dates: start: 20090110
  2. GABAPENTIN [Concomitant]
     Dosage: 800 MG, DAILY
     Route: 048
     Dates: start: 20080605
  3. INTERFERON BETA-1B [Suspect]
     Indication: MULTIPLE SCLEROSIS
     Route: 058
  4. METFORMIN HCL [Concomitant]
     Dosage: 500 MG/ 5 ML DAILY
     Route: 048
     Dates: start: 20090401
  5. MODAFINIL [Concomitant]
     Dosage: 200 MG, DAILY
     Route: 048
     Dates: start: 20081001
  6. VENLAFAXINE [Concomitant]
     Dosage: 75 MG, DAILY
     Route: 048
     Dates: start: 20080301

REACTIONS (1)
  - DEHYDRATION [None]
